FAERS Safety Report 20561949 (Version 1)
Quarter: 2022Q1

REPORT INFORMATION
  Report Type: Spontaneous
  Country: US (occurrence: US)
  Receive Date: 20220307
  Receipt Date: 20220307
  Transmission Date: 20220423
  Serious: Yes (Hospitalization)
  Sender: FDA-Public Use
  Company Number: US-AVEO ONCOLOGY-2021-AVEO-US003585

PATIENT

DRUGS (1)
  1. FOTIVDA [Suspect]
     Active Substance: TIVOZANIB HYDROCHLORIDE
     Indication: Renal cell carcinoma
     Dosage: .89 MG, DAILY FOR 21 DAYS THEN 7 DAYS OF
     Route: 048
     Dates: start: 20210825

REACTIONS (7)
  - Hospitalisation [None]
  - Rectal ulcer haemorrhage [Unknown]
  - Anorectal ulcer [Unknown]
  - Procedural pain [None]
  - Oral pain [Unknown]
  - Erythema [None]
  - Pain in extremity [None]
